FAERS Safety Report 8563826-9 (Version None)
Quarter: 2012Q3

REPORT INFORMATION
  Report Type: 
  Country: None (occurrence: None)
  Receive Date: 20120727
  Receipt Date: 20120727
  Transmission Date: 20120928
  Serious: Yes (Hospitalization)
  Sender: FDA-Public Use
  Company Number: None

PATIENT
  Sex: Male
  Weight: 113 kg

DRUGS (1)
  1. INTERFERON [Suspect]
     Dates: start: 20111107

REACTIONS (1)
  - BLOOD CREATINE PHOSPHOKINASE INCREASED [None]
